FAERS Safety Report 9507570 (Version 1)
Quarter: 2013Q3

REPORT INFORMATION
  Report Type: Spontaneous
  Country: US (occurrence: None)
  Receive Date: 20130906
  Receipt Date: 20130906
  Transmission Date: 20140515
  Serious: No
  Sender: FDA-Public Use
  Company Number: None

PATIENT
  Age: 35 Year
  Sex: Female
  Weight: 58.06 kg

DRUGS (1)
  1. CLARITHROMYCIN 500MG TEVA USA [Suspect]
     Indication: BRONCHITIS
     Dosage: 2 PILLS  TWICE DAILY  TAKEN BY MOUTH
     Route: 048
     Dates: start: 20130819, end: 20130822

REACTIONS (8)
  - Nightmare [None]
  - Night sweats [None]
  - Palpitations [None]
  - Chest discomfort [None]
  - Nervousness [None]
  - Hypertension [None]
  - Decreased appetite [None]
  - Dysgeusia [None]
